FAERS Safety Report 4297035-9 (Version None)
Quarter: 2004Q1

REPORT INFORMATION
  Report Type: 
  Country: None (occurrence: None)
  Receive Date: 20040213
  Receipt Date: 20040202
  Transmission Date: 20041129
  Serious: Yes (Disabling)
  Sender: FDA-Public Use
  Company Number: 2004006692

PATIENT
  Age: 65 Year
  Sex: Female

DRUGS (1)
  1. NORVASC [Suspect]
     Indication: HYPERTENSION
     Dosage: UNKNOWN (DAILY), ORAL
     Route: 048
     Dates: start: 20010101, end: 20030101

REACTIONS (5)
  - EYE IRRITATION [None]
  - EYE PAIN [None]
  - MUSCULAR WEAKNESS [None]
  - OEDEMA [None]
  - TREMOR [None]
